FAERS Safety Report 12805775 (Version 8)
Quarter: 2017Q3

REPORT INFORMATION
  Report Type: Spontaneous
  Country: IE (occurrence: IE)
  Receive Date: 20161004
  Receipt Date: 20170802
  Transmission Date: 20171127
  Serious: Yes (Death, Hospitalization, Other)
  Sender: FDA-Public Use
  Company Number: IE-MYLANLABS-2016M1031672

PATIENT

DRUGS (2)
  1. CLOZARIL [Suspect]
     Active Substance: CLOZAPINE
     Dosage: UNK
     Route: 048
     Dates: start: 20160830
  2. CLOZARIL [Suspect]
     Active Substance: CLOZAPINE
     Indication: SCHIZOPHRENIA
     Dosage: 100 MG, BID
     Route: 048
     Dates: start: 20020403

REACTIONS (13)
  - Dysphagia [Unknown]
  - Death [Fatal]
  - Platelet count decreased [Not Recovered/Not Resolved]
  - Terminal state [Unknown]
  - Neutrophil count increased [Recovered/Resolved]
  - Haemoglobin decreased [Recovering/Resolving]
  - Liver function test increased [Unknown]
  - Wrong technique in product usage process [Unknown]
  - Neutrophil count decreased [Recovered/Resolved]
  - Lung neoplasm malignant [Recovering/Resolving]
  - Metastases to liver [Unknown]
  - White blood cell count decreased [Recovered/Resolved]
  - White blood cell count increased [Recovered/Resolved]

NARRATIVE: CASE EVENT DATE: 20141222
